FAERS Safety Report 4999235-9 (Version None)
Quarter: 2006Q2

REPORT INFORMATION
  Report Type: 
  Country: None (occurrence: None)
  Receive Date: 20060511
  Receipt Date: 20060509
  Transmission Date: 20061013
  Serious: Yes (Life-Threatening, Other)
  Sender: FDA-Public Use
  Company Number: PHBS2006HR06850

PATIENT
  Age: 58 Year
  Sex: Female

DRUGS (4)
  1. CLOZAPINE [Suspect]
     Indication: AGITATION
     Dosage: 100 MG/D
     Route: 048
     Dates: start: 20050721, end: 20050909
  2. HALDOL [Concomitant]
     Dosage: 10 MG/D
     Route: 065
  3. SULPIRIDE [Concomitant]
     Dosage: 200 MG/D
     Route: 065
  4. PRAZINE [Concomitant]
     Dosage: 100 MG/D
     Route: 065

REACTIONS (4)
  - CHOREOATHETOSIS [None]
  - DYSPHAGIA [None]
  - HUNTINGTON'S CHOREA [None]
  - PRODUCTIVE COUGH [None]
